FAERS Safety Report 15982486 (Version 1)
Quarter: 2019Q1

REPORT INFORMATION
  Report Type: Spontaneous
  Country: JP (occurrence: JP)
  Receive Date: 20190219
  Receipt Date: 20190219
  Transmission Date: 20190418
  Serious: Yes (Death)
  Sender: FDA-Public Use
  Company Number: JP-PFIZER INC-2019067721

PATIENT
  Age: 55 Year
  Sex: Male
  Weight: 54 kg

DRUGS (4)
  1. HALCION [Suspect]
     Active Substance: TRIAZOLAM
     Dosage: 0.125 MG (0.5 DF), 1X/DAY
     Route: 048
     Dates: start: 20140629, end: 20170410
  2. HALCION [Suspect]
     Active Substance: TRIAZOLAM
     Dosage: 0.25 MG, 1X/DAY
     Route: 048
     Dates: start: 20180716, end: 20180824
  3. HALCION [Suspect]
     Active Substance: TRIAZOLAM
     Indication: SLEEP DISORDER
     Dosage: 0.125 MG, UNK
     Route: 048
  4. HALCION [Suspect]
     Active Substance: TRIAZOLAM
     Dosage: 0.125 MG (0.5 DF), 1X/DAY
     Route: 048
     Dates: start: 20170411, end: 20180715

REACTIONS (7)
  - Weight decreased [Unknown]
  - Decreased appetite [Unknown]
  - Completed suicide [Fatal]
  - Depression [Fatal]
  - Anxiety [Unknown]
  - Irritability [Unknown]
  - Poor quality sleep [Unknown]

NARRATIVE: CASE EVENT DATE: 20180514
